FAERS Safety Report 8196990-4 (Version None)
Quarter: 2012Q1

REPORT INFORMATION
  Report Type: 
  Country: None (occurrence: None)
  Receive Date: 20120227
  Receipt Date: 20111128
  Transmission Date: 20120608
  Serious: Yes (Other)
  Sender: FDA-Public Use
  Company Number: 336277

PATIENT
  Age: 54 Year
  Sex: Female
  Weight: 115.2 kg

DRUGS (7)
  1. VICTOZA [Suspect]
     Indication: TYPE 2 DIABETES MELLITUS
     Dosage: 0.6 MG, QD, SUBCUTANEOUS 1.2 MG, UNK, SUBCUTANEOUS
     Route: 058
     Dates: start: 20110101, end: 20110922
  2. VICTOZA [Suspect]
     Indication: TYPE 2 DIABETES MELLITUS
     Dosage: 0.6 MG, QD, SUBCUTANEOUS 1.2 MG, UNK, SUBCUTANEOUS
     Route: 058
     Dates: start: 20110801, end: 20110101
  3. FISH OIL (FISH OIL) [Concomitant]
  4. ZETIA [Concomitant]
  5. CLONIDINE [Concomitant]
  6. RAMIPRIL [Concomitant]
  7. DYAZIDE [Concomitant]

REACTIONS (1)
  - PANCREATITIS ACUTE [None]
